FAERS Safety Report 19707361 (Version 2)
Quarter: 2021Q3

REPORT INFORMATION
  Report Type: Report from Study
  Country: US (occurrence: US)
  Receive Date: 20210817
  Receipt Date: 20210914
  Transmission Date: 20211014
  Serious: No
  Sender: FDA-Public Use
  Company Number: NVSC2021US184733

PATIENT
  Sex: Male

DRUGS (1)
  1. ENTRESTO [Suspect]
     Active Substance: SACUBITRIL\VALSARTAN
     Indication: PRODUCT USED FOR UNKNOWN INDICATION
     Dosage: 200 MG, BID(97/103 MG)
     Route: 048

REACTIONS (4)
  - Malaise [Unknown]
  - Blood pressure decreased [Recovering/Resolving]
  - Poor quality sleep [Unknown]
  - Fatigue [Unknown]
